FAERS Safety Report 10441464 (Version 9)
Quarter: 2015Q2

REPORT INFORMATION
  Report Type: Report from Study
  Country: US (occurrence: US)
  Receive Date: 20140909
  Receipt Date: 20150513
  Transmission Date: 20150821
  Serious: Yes (Hospitalization, Other)
  Sender: FDA-Public Use
  Company Number: US-SA-2014SA088061

PATIENT
  Age: 43 Year
  Sex: Female

DRUGS (2)
  1. AUBAGIO [Suspect]
     Active Substance: TERIFLUNOMIDE
     Indication: MULTIPLE SCLEROSIS
     Route: 065
     Dates: start: 20150101, end: 20150228
  2. AUBAGIO [Suspect]
     Active Substance: TERIFLUNOMIDE
     Indication: MULTIPLE SCLEROSIS
     Dosage: STOP DATE: 2 DAYS PRIOR TO THE SURGERY
     Route: 048
     Dates: start: 20140621

REACTIONS (19)
  - Muscular weakness [Unknown]
  - Hypoaesthesia [Unknown]
  - Alopecia [Recovering/Resolving]
  - Multiple sclerosis relapse [Unknown]
  - Dyspnoea [Unknown]
  - General physical health deterioration [Unknown]
  - Fall [Unknown]
  - Abdominal pain upper [Unknown]
  - Nuclear magnetic resonance imaging abnormal [Unknown]
  - Multiple sclerosis relapse [Unknown]
  - Cyst [Unknown]
  - Chest discomfort [Unknown]
  - Bladder operation [Unknown]
  - Abdominal discomfort [Not Recovered/Not Resolved]
  - Blindness unilateral [Recovered/Resolved]
  - Band sensation [Unknown]
  - Diarrhoea [Not Recovered/Not Resolved]
  - Drug dose omission [Unknown]
  - Influenza [Unknown]

NARRATIVE: CASE EVENT DATE: 200407
